FAERS Safety Report 7909613-3 (Version None)
Quarter: 2011Q4

REPORT INFORMATION
  Report Type: 
  Country: None (occurrence: None)
  Receive Date: 20111111
  Receipt Date: 20111102
  Transmission Date: 20120403
  Serious: Yes (Hospitalization)
  Sender: FDA-Public Use
  Company Number: US-GLAXOSMITHKLINE-A0871292A

PATIENT
  Age: 71 Year
  Sex: Male
  Weight: 93.6 kg

DRUGS (1)
  1. AVANDIA [Suspect]
     Indication: TYPE 2 DIABETES MELLITUS
     Dosage: 4MG PER DAY
     Route: 048
     Dates: start: 20000901, end: 20050701

REACTIONS (3)
  - ANGINA UNSTABLE [None]
  - CORONARY ARTERY OCCLUSION [None]
  - CARDIOVASCULAR DISORDER [None]
